FAERS Safety Report 24631639 (Version 1)
Quarter: 2024Q4

REPORT INFORMATION
  Report Type: Spontaneous
  Country: JP (occurrence: JP)
  Receive Date: 20241118
  Receipt Date: 20241118
  Transmission Date: 20250114
  Serious: Yes (Other)
  Sender: OTSUKA
  Company Number: JP-OTSUKA-2024_030709

PATIENT
  Age: 89 Year
  Sex: Male
  Weight: 61.4 kg

DRUGS (19)
  1. TOLVAPTAN [Suspect]
     Active Substance: TOLVAPTAN
     Indication: Cardiac failure congestive
     Dosage: 16 MG/DAY
     Route: 041
     Dates: start: 202308, end: 20230912
  2. SAMSCA [Suspect]
     Active Substance: TOLVAPTAN
     Indication: Cardiac failure congestive
     Dosage: 15 MG/DAY
     Route: 048
     Dates: start: 20230913
  3. FUROSEMIDE [Concomitant]
     Active Substance: FUROSEMIDE
     Indication: Product used for unknown indication
     Dosage: 20MG
     Route: 050
     Dates: end: 2023
  4. FUROSEMIDE [Concomitant]
     Active Substance: FUROSEMIDE
     Dosage: 40MG
     Route: 050
     Dates: start: 2023, end: 20230901
  5. FUROSEMIDE [Concomitant]
     Active Substance: FUROSEMIDE
     Dosage: 100MG/DAY
     Route: 050
     Dates: start: 20230902, end: 20240912
  6. FUROSEMIDE [Concomitant]
     Active Substance: FUROSEMIDE
     Dosage: 80MG
     Route: 050
     Dates: start: 20230913
  7. DOBUTAMINE HYDROCHLORIDE [Concomitant]
     Active Substance: DOBUTAMINE HYDROCHLORIDE
     Indication: Product used for unknown indication
     Dosage: 2 GAMMA
     Route: 065
     Dates: start: 20230828
  8. DOBUTAMINE HYDROCHLORIDE [Concomitant]
     Active Substance: DOBUTAMINE HYDROCHLORIDE
     Dosage: 4 GAMMA
     Route: 065
     Dates: end: 20230912
  9. MILRINONE [Concomitant]
     Active Substance: MILRINONE
     Indication: Product used for unknown indication
     Dosage: 0.125GAMMA
     Route: 065
     Dates: start: 20230830
  10. MILRINONE [Concomitant]
     Active Substance: MILRINONE
     Dosage: 0.25GAMMA
     Route: 065
     Dates: end: 20230912
  11. OXYCODONE [Concomitant]
     Active Substance: OXYCODONE
     Indication: Dyspnoea exertional
     Dosage: 4.8MG/DAY
     Route: 058
     Dates: end: 20230912
  12. OXYCODONE [Concomitant]
     Active Substance: OXYCODONE
     Dosage: 5MG/DAY
     Route: 058
     Dates: start: 20230913
  13. OXYCODONE [Concomitant]
     Active Substance: OXYCODONE
     Dosage: DECREASED
     Route: 058
     Dates: start: 202309, end: 202309
  14. PIMOBENDAN [Concomitant]
     Active Substance: PIMOBENDAN
     Indication: Product used for unknown indication
     Dosage: 5MG
     Route: 065
     Dates: start: 20230913
  15. TADALAFIL [Concomitant]
     Active Substance: TADALAFIL
     Indication: Product used for unknown indication
     Dosage: 5MG (DOSE FOR PROSTATIC HYPERTROPHY)
     Route: 065
     Dates: start: 20230913
  16. DAPRODUSTAT [Concomitant]
     Active Substance: DAPRODUSTAT
     Indication: Product used for unknown indication
     Dosage: UNK
     Route: 065
  17. SPIRONOLACTONE [Concomitant]
     Active Substance: SPIRONOLACTONE
     Indication: Product used for unknown indication
     Dosage: UNK
     Route: 065
     Dates: start: 202309
  18. ACETAZOLAMIDE SODIUM [Concomitant]
     Active Substance: ACETAZOLAMIDE SODIUM
     Indication: Product used for unknown indication
     Dosage: UNK
     Route: 065
     Dates: start: 202309
  19. INDAPAMIDE [Concomitant]
     Active Substance: INDAPAMIDE
     Indication: Product used for unknown indication
     Dosage: UNK
     Route: 065
     Dates: start: 202310

REACTIONS (1)
  - Renal impairment [Unknown]

NARRATIVE: CASE EVENT DATE: 20230101
